FAERS Safety Report 4429074-9 (Version None)
Quarter: 2004Q3

REPORT INFORMATION
  Report Type: 
  Country: None (occurrence: None)
  Receive Date: 20040818
  Receipt Date: 20040719
  Transmission Date: 20050211
  Serious: Yes (Hospitalization)
  Sender: FDA-Public Use
  Company Number: FR-MERCK-0407FRA00051

PATIENT
  Age: 78 Year
  Sex: Female

DRUGS (3)
  1. ACETAMINOPHEN [Suspect]
     Indication: INFECTION
     Route: 048
     Dates: start: 20040401, end: 20040407
  2. ACETAMINOPHEN AND ASCORBIC ACID AND PHENIRAMINE MALEATE [Suspect]
     Indication: INFECTION
     Route: 048
     Dates: start: 20040401, end: 20040407
  3. HYZAAR [Suspect]
     Indication: HYPERTENSION
     Route: 048
     Dates: end: 20040407

REACTIONS (3)
  - HAEMOPTYSIS [None]
  - PURPURA [None]
  - THROMBOCYTOPENIA [None]
